FAERS Safety Report 10216116 (Version 3)
Quarter: 2014Q2

REPORT INFORMATION
  Report Type: Spontaneous
  Country: AT (occurrence: AT)
  Receive Date: 20140604
  Receipt Date: 20140620
  Transmission Date: 20141212
  Serious: Yes (Other)
  Sender: FDA-Public Use
  Company Number: AT-EISAI INC-E2007-01706-SPO-AT

PATIENT
  Age: 26 Year
  Sex: Female

DRUGS (5)
  1. FYCOMPA (PERAMPANEL) [Suspect]
     Indication: EPILEPSY
     Dosage: 2 MG/DAY
     Route: 048
  2. FYCOMPA (PERAMPANEL) [Suspect]
     Dosage: 4 MG/DAY
     Route: 048
     Dates: end: 20140509
  3. FYCOMPA (PERAMPANEL) [Suspect]
     Dosage: 6 MG/DAY
     Route: 048
     Dates: start: 20140510, end: 20140526
  4. NEUROTOP [Concomitant]
     Indication: PRODUCT USED FOR UNKNOWN INDICATION
     Dosage: 600 MG/DAY
     Route: 048
     Dates: start: 20140510
  5. VIMPAT [Concomitant]
     Indication: PRODUCT USED FOR UNKNOWN INDICATION
     Dosage: 400 MG/DAY

REACTIONS (2)
  - Blister [Recovered/Resolved]
  - Arthralgia [Not Recovered/Not Resolved]
